FAERS Safety Report 15129494 (Version 1)
Quarter: 2018Q3

REPORT INFORMATION
  Report Type: Spontaneous
  Country: US (occurrence: US)
  Receive Date: 20180711
  Receipt Date: 20180711
  Transmission Date: 20181010
  Serious: Yes (Death)
  Sender: FDA-Public Use
  Company Number: US-QILU PHARMACEUTICAL CO.LTD.-QLU-000545-2018

PATIENT
  Age: 68 Year
  Sex: Male

DRUGS (5)
  1. DIVALPROEX ER [Suspect]
     Active Substance: DIVALPROEX SODIUM
     Indication: PRODUCT USED FOR UNKNOWN INDICATION
     Dosage: 1250 MG, DAILY
     Route: 065
  2. PALIPERIDONE. [Suspect]
     Active Substance: PALIPERIDONE
     Indication: PRODUCT USED FOR UNKNOWN INDICATION
     Dosage: 234 MG, UNK
     Route: 030
  3. OLANZAPINE. [Suspect]
     Active Substance: OLANZAPINE
     Indication: PRODUCT USED FOR UNKNOWN INDICATION
     Dosage: 10 MG, DAILY
     Route: 048
  4. BENZTROPINE. [Concomitant]
     Active Substance: BENZTROPINE
     Indication: PROPHYLAXIS
     Dosage: 0.5 MG, QD
     Route: 048
  5. PALIPERIDONE. [Suspect]
     Active Substance: PALIPERIDONE
     Dosage: LOADING DOSE OF 156 MG
     Route: 030

REACTIONS (10)
  - Dysphonia [Unknown]
  - Slow speech [Unknown]
  - Sedation [Unknown]
  - Reduced facial expression [Unknown]
  - Gait disturbance [Unknown]
  - Cognitive disorder [Unknown]
  - Parkinsonism [Fatal]
  - Salivary hypersecretion [Unknown]
  - Hypokinesia [Unknown]
  - Cogwheel rigidity [Unknown]
